FAERS Safety Report 21329617 (Version 1)
Quarter: 2022Q3

REPORT INFORMATION
  Report Type: Spontaneous
  Country: CN (occurrence: CN)
  Receive Date: 20220913
  Receipt Date: 20220913
  Transmission Date: 20221026
  Serious: Yes (Other)
  Sender: FDA-Public Use
  Company Number: CN-ALLERGAN-2229789US

PATIENT
  Sex: Female

DRUGS (3)
  1. OZURDEX [Suspect]
     Active Substance: DEXAMETHASONE
     Indication: Retinal vein occlusion
     Dosage: 0.7 MG, SINGLE
     Route: 031
  2. METHYLCOBALAMIN [Concomitant]
     Active Substance: METHYLCOBALAMIN
     Indication: Nerve degeneration
     Dosage: 1 DF, TID
  3. GINKGO [Concomitant]
     Active Substance: GINKGO

REACTIONS (1)
  - Optic disc haemorrhage [Unknown]
